FAERS Safety Report 4614028-X (Version None)
Quarter: 2005Q1

REPORT INFORMATION
  Report Type: 
  Country: None (occurrence: None)
  Receive Date: 20050321
  Receipt Date: 20050304
  Transmission Date: 20050727
  Serious: Yes (Other)
  Sender: FDA-Public Use
  Company Number: JP-ROCHE-398904

PATIENT
  Age: 6 Year
  Sex: Male

DRUGS (1)
  1. TAMIFLU [Suspect]
     Route: 048
     Dates: start: 20050226, end: 20050302

REACTIONS (4)
  - AMNESIA [None]
  - DELIRIUM [None]
  - EXCITABILITY [None]
  - HALLUCINATION, VISUAL [None]
